FAERS Safety Report 4661597-X (Version None)
Quarter: 2005Q2

REPORT INFORMATION
  Report Type: 
  Country: None (occurrence: None)
  Receive Date: 20050511
  Receipt Date: 20050511
  Transmission Date: 20051028
  Serious: Yes (Hospitalization)
  Sender: FDA-Public Use
  Company Number: None

PATIENT
  Age: 59 Year
  Sex: Male

DRUGS (8)
  1. DILTIAZEM [Suspect]
     Indication: HYPERTENSION
     Dosage: 240 MG Q AM
     Dates: start: 19990601
  2. MAXZIDE [Suspect]
     Indication: HYPERTENSION
     Dosage: 1/2 TAB QD
     Dates: start: 20010501
  3. SERTRALINE HCL [Concomitant]
  4. BACLOFEN [Concomitant]
  5. TYLENOL W/ CODEINE NO. 2 [Concomitant]
  6. ZOCOR [Concomitant]
  7. LEVOTHYROXINE SODIUM [Concomitant]
  8. METHADONE [Concomitant]

REACTIONS (2)
  - BRADYCARDIA [None]
  - SYNCOPE [None]
